FAERS Safety Report 4991471-0 (Version None)
Quarter: 2006Q2

REPORT INFORMATION
  Report Type: 
  Country: None (occurrence: None)
  Receive Date: 20060502
  Receipt Date: 20060421
  Transmission Date: 20061013
  Serious: Yes (Life-Threatening, Hospitalization)
  Sender: FDA-Public Use
  Company Number: 200611600GDS

PATIENT
  Age: 70 Year
  Sex: Female
  Weight: 70 kg

DRUGS (2)
  1. GLUCOBAY [Suspect]
     Dosage: 300 MG, TOTAL DAILY, ORAL
     Route: 048
     Dates: end: 20050322
  2. EUGLOCON                      (GLIBENCLAMIDE) [Suspect]
     Dosage: ORAL
     Route: 048
     Dates: end: 20050322

REACTIONS (1)
  - HYPOGLYCAEMIA [None]
